FAERS Safety Report 24881317 (Version 1)
Quarter: 2025Q1

REPORT INFORMATION
  Report Type: Spontaneous
  Country: US (occurrence: US)
  Receive Date: 20250124
  Receipt Date: 20250124
  Transmission Date: 20250409
  Serious: No
  Sender: BLUEPRINT MEDICINES
  Company Number: US-Blueprint Medicines Corporation-2025-AER-00142

PATIENT
  Age: 54 Year
  Sex: Male

DRUGS (2)
  1. AYVAKIT [Suspect]
     Active Substance: AVAPRITINIB
     Indication: Malignant connective tissue neoplasm
     Route: 065
     Dates: start: 20230718
  2. AYVAKIT [Suspect]
     Active Substance: AVAPRITINIB
     Indication: Soft tissue sarcoma

REACTIONS (1)
  - Brain fog [Recovered/Resolved]

NARRATIVE: CASE EVENT DATE: 20241215
